FAERS Safety Report 10620070 (Version 1)
Quarter: 2014Q4

REPORT INFORMATION
  Report Type: Spontaneous
  Country: US (occurrence: US)
  Receive Date: 20141202
  Receipt Date: 20141202
  Transmission Date: 20150529
  Serious: No
  Sender: FDA-Public Use
  Company Number: US-GILEAD-2014-0124474

PATIENT
  Age: 63 Year
  Sex: Male

DRUGS (2)
  1. OLYSIO [Concomitant]
     Active Substance: SIMEPREVIR
     Dosage: UNK
     Route: 065
     Dates: start: 201411
  2. SOVALDI [Suspect]
     Active Substance: SOFOSBUVIR
     Indication: HEPATITIS C
     Dosage: 400 MG, QD
     Route: 048
     Dates: start: 20141105

REACTIONS (7)
  - Fatigue [Unknown]
  - Abdominal pain upper [Unknown]
  - Vomiting [Unknown]
  - Diarrhoea [Unknown]
  - Nausea [Unknown]
  - Chills [Unknown]
  - Influenza like illness [Unknown]

NARRATIVE: CASE EVENT DATE: 20141120
